FAERS Safety Report 4887681-3 (Version None)
Quarter: 2006Q1

REPORT INFORMATION
  Report Type: 
  Country: None (occurrence: None)
  Receive Date: 20060119
  Receipt Date: 20060119
  Transmission Date: 20060701
  Serious: Yes (Other)
  Sender: FDA-Public Use
  Company Number: None

PATIENT
  Sex: Male
  Weight: 77.5651 kg

DRUGS (23)
  1. BONIVA [Suspect]
     Indication: OSTEOPOROSIS
     Dosage: SINGLE DOSE
     Dates: start: 20051117
  2. CALCIUM GLUCONATE [Concomitant]
  3. TUMS [Concomitant]
  4. PRILOSEC [Concomitant]
  5. ACCUPRIL [Concomitant]
  6. NORVASC [Concomitant]
  7. BENICAR HCT [Concomitant]
  8. TOPROL [Concomitant]
  9. HYTRIN [Concomitant]
  10. DICYCLOMINE HCL INJ [Concomitant]
  11. MIRAPEX [Concomitant]
  12. LEXAPRO [Concomitant]
  13. REMERON [Concomitant]
  14. CYMBALTA [Concomitant]
  15. FLOMAX [Concomitant]
  16. TYLENOL ES [Concomitant]
  17. PLETAL [Concomitant]
  18. HYDROCHLOROTHIAZIDE [Concomitant]
  19. M.V.I. [Concomitant]
  20. GLUCOSAMINE CHRONDRATIN [Concomitant]
  21. KLOR-CON [Concomitant]
  22. TRIAMCINDONE ACETONIDE CREAM [Concomitant]
  23. VIAGRA [Concomitant]

REACTIONS (3)
  - ERYTHEMA [None]
  - PAIN IN EXTREMITY [None]
  - SWELLING [None]
